FAERS Safety Report 25538184 (Version 1)
Quarter: 2025Q3

REPORT INFORMATION
  Report Type: Spontaneous
  Country: EU (occurrence: EU)
  Receive Date: 20250710
  Receipt Date: 20250710
  Transmission Date: 20251020
  Serious: Yes (Hospitalization)
  Sender: RANBAXY
  Company Number: EU-AEMPS-1651712

PATIENT
  Age: 31 Year
  Sex: Female

DRUGS (4)
  1. OMEPRAZOLE [Interacting]
     Active Substance: OMEPRAZOLE
     Indication: Gastrointestinal disorder prophylaxis
     Dosage: 20 MILLIGRAM, QD
     Route: 048
     Dates: start: 20240920, end: 20241002
  2. PIPERACILLIN SODIUM\TAZOBACTAM SODIUM [Interacting]
     Active Substance: PIPERACILLIN SODIUM\TAZOBACTAM SODIUM
     Indication: Pyelonephritis acute
     Dosage: 4 GRAM, QID
     Route: 040
     Dates: start: 20240919, end: 20241001
  3. METAMIZOL [Interacting]
     Active Substance: METAMIZOLE SODIUM
     Indication: Pain
     Dosage: 1 GRAM, QD
     Route: 040
     Dates: start: 20240920, end: 20240921
  4. TROMETHAMINE [Interacting]
     Active Substance: TROMETHAMINE
     Indication: Pain
     Dosage: 50 MILLIGRAM, BID
     Route: 040
     Dates: start: 20240922, end: 20240928

REACTIONS (1)
  - Tubulointerstitial nephritis [Recovering/Resolving]

NARRATIVE: CASE EVENT DATE: 20240922
